FAERS Safety Report 6517659-5 (Version None)
Quarter: 2009Q4

REPORT INFORMATION
  Report Type: 
  Country: None (occurrence: None)
  Receive Date: 20091224
  Receipt Date: 20091221
  Transmission Date: 20100525
  Serious: Yes (Other)
  Sender: FDA-Public Use
  Company Number: IT-WYE-G05214509

PATIENT
  Age: 56 Year
  Sex: Female

DRUGS (1)
  1. TORISEL [Suspect]
     Indication: MANTLE CELL LYMPHOMA
     Dosage: NOT PROVIDED

REACTIONS (1)
  - DISEASE PROGRESSION [None]
